FAERS Safety Report 12497164 (Version 3)
Quarter: 2017Q1

REPORT INFORMATION
  Report Type: Report from Study
  Country: US (occurrence: US)
  Receive Date: 20160624
  Receipt Date: 20170222
  Transmission Date: 20170428
  Serious: Yes (Other)
  Sender: FDA-Public Use
  Company Number: US-REGENERON PHARMACEUTICALS, INC.-2016-18572

PATIENT

DRUGS (3)
  1. EYLEA [Suspect]
     Active Substance: AFLIBERCEPT
     Indication: RETINAL VEIN OCCLUSION
     Dosage: 0.5 MG, EVERY 8 WEEKS, LEFT EYE
     Route: 031
     Dates: start: 20160418
  2. XYREM [Suspect]
     Active Substance: SODIUM OXYBATE
     Indication: PRODUCT USED FOR UNKNOWN INDICATION
  3. EYLEA [Suspect]
     Active Substance: AFLIBERCEPT
     Dosage: 0.5 MG MILLIGRAM(S), LAST DOSE - #9, LEFT EYE
     Route: 031
     Dates: start: 20170207, end: 20170207

REACTIONS (2)
  - Back injury [Recovering/Resolving]
  - Visual impairment [Not Recovered/Not Resolved]

NARRATIVE: CASE EVENT DATE: 201603
